FAERS Safety Report 26199726 (Version 1)
Quarter: 2025Q4

REPORT INFORMATION
  Report Type: Spontaneous
  Country: US (occurrence: US)
  Receive Date: 20251225
  Receipt Date: 20251225
  Transmission Date: 20260117
  Serious: Yes (Hospitalization)
  Sender: CSL BEHRING
  Company Number: US-BEH-2025229731

PATIENT
  Sex: Male

DRUGS (1)
  1. HUMATE-P [Suspect]
     Active Substance: HUMAN COAGULATION FACTOR VIII/VON WILLEBRAND FACTOR COMPLEX
     Indication: Von Willebrand^s disease
     Dosage: 4200 RCOF ((3780-4620) TWICE A WEEK. MAY INCREASE TO 3 TIMES PER WEEK PENDING LEVELS
     Route: 042
     Dates: start: 202511

REACTIONS (1)
  - Cardiac operation [Unknown]
